FAERS Safety Report 4565627-5 (Version None)
Quarter: 2005Q1

REPORT INFORMATION
  Report Type: 
  Country: None (occurrence: None)
  Receive Date: 20050131
  Receipt Date: 20050112
  Transmission Date: 20050727
  Serious: Yes (Death)
  Sender: FDA-Public Use
  Company Number: IE-JNJFOC-20050103393

PATIENT
  Sex: Male

DRUGS (10)
  1. RISPERDAL [Suspect]
     Indication: DRUG USE FOR UNKNOWN INDICATION
  2. OLANZAPINE [Suspect]
     Indication: DRUG USE FOR UNKNOWN INDICATION
  3. TRAZADONE [Suspect]
     Indication: DRUG USE FOR UNKNOWN INDICATION
  4. PRAVASTATIN [Concomitant]
  5. TENORMIN [Concomitant]
  6. TRITACE [Concomitant]
  7. ASPIRIN [Concomitant]
  8. DIGOXIN [Concomitant]
  9. ATROVENT [Concomitant]
  10. WARFARIN SODIUM [Concomitant]

REACTIONS (4)
  - GASTRIC DILATATION [None]
  - INTESTINAL DILATATION [None]
  - PNEUMONIA [None]
  - SEPSIS [None]
